FAERS Safety Report 23536424 (Version 2)
Quarter: 2024Q3

REPORT INFORMATION
  Report Type: Report from Study
  Country: US (occurrence: US)
  Receive Date: 20240219
  Receipt Date: 20240731
  Transmission Date: 20241016
  Serious: No
  Sender: AURINIA PHARMACEUTICALS
  Company Number: US-AURINIA PHARMACEUTICALS INC.-AUR-005057

PATIENT
  Age: 50 Year
  Sex: Male

DRUGS (2)
  1. LUPKYNIS [Suspect]
     Active Substance: VOCLOSPORIN
     Indication: Lupus nephritis
     Dosage: 15.8 MILLIGRAM, BID
     Route: 048
     Dates: start: 20231227
  2. MUCINEX [Suspect]
     Active Substance: GUAIFENESIN
     Indication: Influenza
     Dosage: UNK

REACTIONS (9)
  - Abdominal distension [Unknown]
  - Gastrointestinal sounds abnormal [Unknown]
  - Flatulence [Unknown]
  - Influenza [Unknown]
  - Rash [Unknown]
  - Drug hypersensitivity [Recovering/Resolving]
  - Hypersensitivity [Unknown]
  - Nervousness [Unknown]
  - Hypertension [Unknown]

NARRATIVE: CASE EVENT DATE: 20240101
